FAERS Safety Report 10606586 (Version 1)
Quarter: 2014Q4

REPORT INFORMATION
  Report Type: Spontaneous
  Country: US (occurrence: None)
  Receive Date: 20141124
  Receipt Date: 20141124
  Transmission Date: 20150529
  Serious: Yes (Hospitalization, Disabling)
  Sender: FDA-Public Use
  Company Number: None

PATIENT
  Age: 3 Year
  Sex: Male
  Weight: 21 kg

DRUGS (1)
  1. HYDROXYUREA. [Suspect]
     Active Substance: HYDROXYUREA
     Indication: THALASSAEMIA SICKLE CELL
     Dosage: AT BED TIME
     Route: 048
     Dates: start: 20101020, end: 20131106

REACTIONS (7)
  - Drug monitoring procedure incorrectly performed [None]
  - Memory impairment [None]
  - Drug dose omission [None]
  - Fall [None]
  - Dysstasia [None]
  - Pain [None]
  - Wheelchair user [None]
